FAERS Safety Report 9744422 (Version 2)
Quarter: 2013Q4

REPORT INFORMATION
  Report Type: Spontaneous
  Country: IT (occurrence: IT)
  Receive Date: 20131210
  Receipt Date: 20131210
  Transmission Date: 20140711
  Serious: Yes (Hospitalization, Other)
  Sender: FDA-Public Use
  Company Number: IT-TEVA-434294ISR

PATIENT
  Age: 79 Year
  Sex: Male

DRUGS (1)
  1. AMOXICILLINA TRIIDRATA/POTASSIO CLAVULANATO [Suspect]
     Indication: COUGH
     Dosage: 1 GRAM DAILY;
     Route: 048
     Dates: start: 20130911, end: 20130911

REACTIONS (2)
  - Dermatitis exfoliative [Recovered/Resolved with Sequelae]
  - Diabetes mellitus [Unknown]
